FAERS Safety Report 9789256 (Version 2)
Quarter: 2014Q2

REPORT INFORMATION
  Report Type: Spontaneous
  Country: IT (occurrence: IT)
  Receive Date: 20131230
  Receipt Date: 20140522
  Transmission Date: 20141212
  Serious: Yes (Hospitalization)
  Sender: FDA-Public Use
  Company Number: IT-MYLANLABS-113AS20130631

PATIENT
  Age: 79 Year
  Sex: Female

DRUGS (1)
  1. CARVEDILOL [Suspect]
     Indication: ARRHYTHMIA
     Dosage: 25 MG DAILY
     Route: 048
     Dates: start: 20100721, end: 20130721

REACTIONS (3)
  - Hypotension [Recovering/Resolving]
  - Asthenia [Recovering/Resolving]
  - Dehydration [Recovering/Resolving]
